FAERS Safety Report 15170931 (Version 15)
Quarter: 2020Q3

REPORT INFORMATION
  Report Type: Spontaneous
  Country: US (occurrence: US)
  Receive Date: 20180720
  Receipt Date: 20200731
  Transmission Date: 20201102
  Serious: Yes (Other)
  Sender: FDA-Public Use
  Company Number: US-SA-2018SA194843

PATIENT

DRUGS (2)
  1. KEVZARA [Suspect]
     Active Substance: SARILUMAB
     Indication: RHEUMATOID ARTHRITIS
     Dosage: 200 MG, QOW
     Route: 058
     Dates: start: 20180214
  2. KEVZARA [Suspect]
     Active Substance: SARILUMAB
     Indication: PRODUCT USED FOR UNKNOWN INDICATION
     Dosage: 200 MG, QOW
     Route: 058

REACTIONS (20)
  - Herpes zoster [Unknown]
  - Rash [Unknown]
  - Injection site pain [Unknown]
  - Injection site erythema [Unknown]
  - Eczema [Unknown]
  - Injection site irritation [Unknown]
  - Condition aggravated [Unknown]
  - COVID-19 [Recovered/Resolved]
  - Erythema [Unknown]
  - Rash [Recovering/Resolving]
  - Peripheral swelling [Unknown]
  - Illness [Unknown]
  - Unevaluable event [Unknown]
  - Injection site swelling [Unknown]
  - Sjogren^s syndrome [Unknown]
  - Malaise [Recovered/Resolved]
  - Ocular discomfort [Unknown]
  - Viral infection [Unknown]
  - Nasopharyngitis [Unknown]
  - Fall [Unknown]

NARRATIVE: CASE EVENT DATE: 2018
